FAERS Safety Report 7926637-0 (Version None)
Quarter: 2011Q4

REPORT INFORMATION
  Report Type: 
  Country: None (occurrence: None)
  Receive Date: 20111118
  Receipt Date: 20111111
  Transmission Date: 20120403
  Serious: No
  Sender: FDA-Public Use
  Company Number: US-BIOGENIDEC-2011BI043413

PATIENT
  Age: 62 Year
  Sex: Female

DRUGS (5)
  1. METOPROLOL TARTRATE [Concomitant]
     Indication: HEART RATE INCREASED
  2. DIGOXIN [Concomitant]
     Indication: HEART RATE INCREASED
  3. AVONEX [Suspect]
     Indication: MULTIPLE SCLEROSIS
     Route: 030
     Dates: start: 20110915
  4. ACETAMINOPHEN [Concomitant]
     Indication: PREMEDICATION
  5. AVONEX [Suspect]
     Route: 030
     Dates: start: 20070101, end: 20071201

REACTIONS (7)
  - PYREXIA [None]
  - CHILLS [None]
  - FATIGUE [None]
  - HEART RATE INCREASED [None]
  - WEIGHT INCREASED [None]
  - HOT FLUSH [None]
  - JOINT SWELLING [None]
